FAERS Safety Report 8125942-5 (Version None)
Quarter: 2012Q1

REPORT INFORMATION
  Report Type: 
  Country: None (occurrence: None)
  Receive Date: 20120209
  Receipt Date: 20120207
  Transmission Date: 20120608
  Serious: Yes (Other)
  Sender: FDA-Public Use
  Company Number: US-ROCHE-793697

PATIENT
  Sex: Female
  Weight: 61.29 kg

DRUGS (1)
  1. ACCUTANE [Suspect]
     Indication: ACNE
     Route: 065

REACTIONS (6)
  - INFLAMMATORY BOWEL DISEASE [None]
  - DRUG HYPERSENSITIVITY [None]
  - HYPERTENSION [None]
  - ARTHRITIS [None]
  - ACNE [None]
  - COLITIS ULCERATIVE [None]
